FAERS Safety Report 11279809 (Version 2)
Quarter: 2015Q3

REPORT INFORMATION
  Report Type: Spontaneous
  Country: US (occurrence: US)
  Receive Date: 20150717
  Receipt Date: 20150827
  Transmission Date: 20151125
  Serious: No
  Sender: FDA-Public Use
  Company Number: US-PFIZER INC-2015234539

PATIENT
  Age: 92 Year
  Sex: Female
  Weight: 70 kg

DRUGS (1)
  1. LATANOPROST. [Suspect]
     Active Substance: LATANOPROST
     Indication: INTRAOCULAR PRESSURE INCREASED
     Dosage: 1 GTT, UNK
     Route: 047

REACTIONS (4)
  - Product container issue [Unknown]
  - Medication residue present [Unknown]
  - Drug dose omission [Unknown]
  - Accidental overdose [Unknown]
